FAERS Safety Report 8390349-2 (Version None)
Quarter: 2012Q2

REPORT INFORMATION
  Report Type: 
  Country: None (occurrence: None)
  Receive Date: 20120529
  Receipt Date: 20120523
  Transmission Date: 20120825
  Serious: Yes (Life-Threatening, Hospitalization, Other)
  Sender: FDA-Public Use
  Company Number: US-BAYER-2012-052011

PATIENT

DRUGS (1)
  1. AVELOX [Suspect]
     Dosage: DOSE DAILY: 400MG DAILY
     Route: 048

REACTIONS (1)
  - ANAPHYLACTIC REACTION [None]
